FAERS Safety Report 13374521 (Version 2)
Quarter: 2017Q1

REPORT INFORMATION
  Report Type: Report from Study
  Country: ES (occurrence: ES)
  Receive Date: 20170327
  Receipt Date: 20170330
  Transmission Date: 20170429
  Serious: Yes (Death, Hospitalization)
  Sender: FDA-Public Use
  Company Number: ES-CELGENEUS-ESP-2017035653

PATIENT
  Age: 82 Year
  Sex: Male

DRUGS (2)
  1. EPOETIN [Suspect]
     Active Substance: ERYTHROPOIETIN
     Dosage: 10.7143 MILLIGRAM
     Route: 030
     Dates: end: 20151217
  2. EPOETIN [Suspect]
     Active Substance: ERYTHROPOIETIN
     Indication: MYELODYSPLASTIC SYNDROME
     Dosage: 10.7143 MILLIGRAM
     Route: 030
     Dates: start: 20131001

REACTIONS (1)
  - Confusional state [Fatal]

NARRATIVE: CASE EVENT DATE: 20151230
